FAERS Safety Report 19642835 (Version 1)
Quarter: 2021Q3

REPORT INFORMATION
  Report Type: Spontaneous
  Country: FR (occurrence: FR)
  Receive Date: 20210730
  Receipt Date: 20210730
  Transmission Date: 20211014
  Serious: Yes (Other)
  Sender: FDA-Public Use
  Company Number: FR-PFIZER INC-202100924935

PATIENT
  Age: 15 Year
  Sex: Female

DRUGS (3)
  1. KETAMINE [Suspect]
     Active Substance: KETAMINE
     Dosage: UNK
     Route: 045
  2. TERCIAN [CYAMEMAZINE TARTRATE] [Suspect]
     Active Substance: CYAMEMAZINE
     Dosage: 1 BLISTER
     Route: 048
  3. XANAX [Suspect]
     Active Substance: ALPRAZOLAM
     Dosage: 1 BLISTER I.E. 10 TAB = 5 MG IN TOTAL
     Route: 048

REACTIONS (2)
  - Drug abuse [Unknown]
  - Poisoning deliberate [Unknown]
